FAERS Safety Report 8882154 (Version 3)
Quarter: 2013Q2

REPORT INFORMATION
  Report Type: Spontaneous
  Country: US (occurrence: US)
  Receive Date: 20121105
  Receipt Date: 20130423
  Transmission Date: 20140414
  Serious: Yes (Hospitalization, Disabling, Other)
  Sender: FDA-Public Use
  Company Number: US-BAYER-2012-114092

PATIENT
  Age: 22 Year
  Sex: Female
  Weight: 90.7 kg

DRUGS (10)
  1. YAZ [Suspect]
     Indication: CONTRACEPTION
     Dosage: UNK
     Dates: start: 200707, end: 200903
  2. ADDERALL XR [Concomitant]
     Dosage: 30 MG, UNK
  3. ADVAIR [Concomitant]
  4. ACIPHEX [Concomitant]
  5. UNCODEABLE ^UNCLASSIFIABLE^ [Concomitant]
  6. AMPHETAMINE SALTS [Concomitant]
     Dosage: 20 MG, UNK
  7. AMMONIUM LACTATE [Concomitant]
     Dosage: 12 UNK, UNK
  8. FLUCONAZOLE [Concomitant]
     Dosage: 150 MG, UNK
  9. AZITHROMYCIN [Concomitant]
     Dosage: 250 MG, UNK
     Route: 048
     Dates: start: 20081219
  10. HYDROCODONE W/APAP [Concomitant]
     Dosage: 5 MG/500 MG
     Route: 048
     Dates: start: 20090306

REACTIONS (10)
  - Deep vein thrombosis [None]
  - Deep vein thrombosis [None]
  - Cholecystitis chronic [None]
  - Cholecystitis [None]
  - Injury [None]
  - Pain [None]
  - Deformity [None]
  - Anxiety [None]
  - Anhedonia [None]
  - Abdominal pain upper [None]
